FAERS Safety Report 24250490 (Version 5)
Quarter: 2024Q4

REPORT INFORMATION
  Report Type: Report from Study
  Country: ES (occurrence: ES)
  Receive Date: 20240826
  Receipt Date: 20241006
  Transmission Date: 20250115
  Serious: Yes (Other)
  Sender: ABBVIE
  Company Number: ES-ABBVIE-5892960

PATIENT
  Sex: Male

DRUGS (2)
  1. CARBIDOPA\LEVODOPA [Suspect]
     Active Substance: CARBIDOPA\LEVODOPA
     Indication: Parkinson^s disease
     Route: 050
     Dates: start: 20220707, end: 202409
  2. CARBIDOPA\LEVODOPA [Suspect]
     Active Substance: CARBIDOPA\LEVODOPA
     Dosage: CONTINUOUS DOSE INCREASED BY 0.1 ML/H
     Route: 050
     Dates: start: 202409

REACTIONS (13)
  - Aphasia [Recovered/Resolved]
  - Device dislocation [Recovered/Resolved]
  - Loss of personal independence in daily activities [Not Recovered/Not Resolved]
  - On and off phenomenon [Recovered/Resolved]
  - Device issue [Recovering/Resolving]
  - Musculoskeletal stiffness [Recovered/Resolved]
  - Therapeutic product effect incomplete [Unknown]
  - Neoplasm prostate [Not Recovered/Not Resolved]
  - Device physical property issue [Recovered/Resolved]
  - Device issue [Recovering/Resolving]
  - Restlessness [Recovered/Resolved]
  - Off label use [Not Recovered/Not Resolved]
  - Unresponsive to stimuli [Recovered/Resolved]

NARRATIVE: CASE EVENT DATE: 20240101
